FAERS Safety Report 6856123-0 (Version None)
Quarter: 2010Q3

REPORT INFORMATION
  Report Type: 
  Country: None (occurrence: None)
  Receive Date: 20100719
  Receipt Date: 20100705
  Transmission Date: 20110219
  Serious: Yes (Other)
  Sender: FDA-Public Use
  Company Number: PHHY2010IT31243

PATIENT
  Sex: Male

DRUGS (7)
  1. ZOMETA [Suspect]
     Indication: METASTASES TO BONE
     Dosage: UNK
     Dates: start: 20080501, end: 20091231
  2. SUNITINIB MALATE [Concomitant]
     Dosage: UNK
     Dates: start: 20080501, end: 20080601
  3. SORAFENIB [Concomitant]
     Dosage: UNK
     Dates: start: 20090601, end: 20100301
  4. SERTRALINE CLORIDRATO [Concomitant]
     Dosage: UNK
  5. FENTANYL [Concomitant]
     Dosage: 50 MCG/HOUR
     Route: 062
  6. CALCIUM CARBONATE [Concomitant]
     Dosage: 100 MG, UNK
  7. VITAMIN D3 [Concomitant]
     Dosage: 880 UI, UNK

REACTIONS (1)
  - OSTEONECROSIS OF JAW [None]
